FAERS Safety Report 9603350 (Version 5)
Quarter: 2017Q2

REPORT INFORMATION
  Report Type: Spontaneous
  Country: US (occurrence: US)
  Receive Date: 20131007
  Receipt Date: 20170526
  Transmission Date: 20170830
  Serious: Yes (Other)
  Sender: FDA-Public Use
  Company Number: US-009507513-1310USA002677

PATIENT
  Age: 32 Year
  Sex: Female
  Weight: 104.31 kg

DRUGS (3)
  1. NEXPLANON [Suspect]
     Active Substance: ETONOGESTREL
     Dosage: UNK
     Route: 059
     Dates: start: 20130916, end: 20130916
  2. NEXPLANON [Suspect]
     Active Substance: ETONOGESTREL
     Dosage: UNK
     Route: 059
     Dates: start: 20130916
  3. NEXPLANON [Suspect]
     Active Substance: ETONOGESTREL
     Dosage: 1 ROD, IN ARM
     Route: 059
     Dates: start: 201602

REACTIONS (6)
  - Complication of device insertion [Recovered/Resolved]
  - Complication associated with device [Not Recovered/Not Resolved]
  - Pregnancy with implant contraceptive [Unknown]
  - Polycystic ovaries [Unknown]
  - Unintended pregnancy [Unknown]
  - Needle issue [Unknown]

NARRATIVE: CASE EVENT DATE: 20130916
